FAERS Safety Report 5703022-3 (Version None)
Quarter: 2008Q2

REPORT INFORMATION
  Report Type: 
  Country: None (occurrence: None)
  Receive Date: 20080408
  Receipt Date: 20080402
  Transmission Date: 20081010
  Serious: Yes (Other)
  Sender: FDA-Public Use
  Company Number: 77080

PATIENT
  Age: 62 Year
  Sex: Female

DRUGS (7)
  1. ACETAMINOPHEN [Suspect]
     Indication: PAIN
     Dosage: 500 MG/BID AS NEEDED/ORAL
     Route: 048
  2. BENADRYL [Concomitant]
  3. UNKNOWN SEIZURE MEDICATION [Concomitant]
  4. BYPRENASIL [Concomitant]
  5. ATENOLOL [Concomitant]
  6. COUMADIN [Concomitant]
  7. UNKNOWN MEDICATIONS TO PREVENT PANIC ATTACKS [Concomitant]

REACTIONS (1)
  - HEPATIC CANCER METASTATIC [None]
